FAERS Safety Report 16558139 (Version 1)
Quarter: 2019Q3

REPORT INFORMATION
  Report Type: Spontaneous
  Country: DE (occurrence: DE)
  Receive Date: 20190711
  Receipt Date: 20190711
  Transmission Date: 20191004
  Serious: Yes (Hospitalization)
  Sender: FDA-Public Use
  Company Number: DE-ACCORD-137824

PATIENT
  Age: 75 Year
  Sex: Male
  Weight: 70 kg

DRUGS (14)
  1. NOVALGIN [Concomitant]
     Dosage: 1 G, NEED, TABLETS
     Route: 048
  2. CLEXANE [Concomitant]
     Active Substance: ENOXAPARIN SODIUM
     Dosage: 0.7 ML, 1-0-1-0, SOLUTION FOR INJECTION / INFUSION
     Route: 058
  3. POTASSIUM [Concomitant]
     Active Substance: POTASSIUM
     Dosage: 1 BAG, 1-1-0-0, BAG
     Route: 048
  4. IRINOTECAN [Suspect]
     Active Substance: IRINOTECAN
     Indication: PRODUCT USED FOR UNKNOWN INDICATION
     Dosage: SCHEME
     Route: 042
  5. MAGNESIUM [Concomitant]
     Active Substance: MAGNESIUM
     Dosage: 1 DRAGEE, 1-1-1-0, DRAGEES
     Route: 048
  6. FLUOROURACIL. [Suspect]
     Active Substance: FLUOROURACIL
     Indication: PRODUCT USED FOR UNKNOWN INDICATION
     Dosage: SCHEME, SOLUTION FOR INJECTION / INFUSION
     Route: 042
  7. LINEZOLID. [Concomitant]
     Active Substance: LINEZOLID
     Dosage: 600 MG, 1-0-1-0, TABLETS
     Route: 048
  8. MOVICOL [Concomitant]
     Active Substance: POLYETHYLENE GLYCOL 3350\POTASSIUM CHLORIDE\SODIUM BICARBONATE\SODIUM CHLORIDE
     Dosage: 13.125, 0.35, 0.18, 0.05 G, 1-0-0-0, BAG
     Route: 048
  9. FOLINIC ACID [Suspect]
     Active Substance: LEUCOVORIN
     Indication: PRODUCT USED FOR UNKNOWN INDICATION
     Dosage: SCHEME, SOLUTION FOR INJECTION / INFUSION
     Route: 042
  10. PANTOZOL [Concomitant]
     Active Substance: PANTOPRAZOLE SODIUM
     Dosage: STRENGTH: 40 MG?40 MG, 1-0-0-0, TABLETS
     Route: 048
  11. LOPERAMIDE [Concomitant]
     Active Substance: LOPERAMIDE
     Dosage: 2 MG, NEED, TABLETS
     Route: 048
  12. ONDANSETRON [Concomitant]
     Active Substance: ONDANSETRON
     Dosage: 8 MG, SCHEME, TABLETS
     Route: 048
  13. DEXAMETHASONE. [Concomitant]
     Active Substance: DEXAMETHASONE
     Dosage: 8 MG, SCHEME, TABLETS
     Route: 048
  14. METOCLOPRAMIDE. [Concomitant]
     Active Substance: METOCLOPRAMIDE
     Dosage: 10 MG, SCHEME, TABLETS
     Route: 048

REACTIONS (5)
  - Abdominal pain [Unknown]
  - Chills [Unknown]
  - Pyrexia [Unknown]
  - Diarrhoea [Unknown]
  - Haematochezia [Unknown]
